FAERS Safety Report 15772006 (Version 2)
Quarter: 2022Q2

REPORT INFORMATION
  Report Type: Spontaneous
  Country: US (occurrence: US)
  Receive Date: 20181228
  Receipt Date: 20220419
  Transmission Date: 20220720
  Serious: Yes (Disabling)
  Sender: FDA-Public Use
  Company Number: US-TEVA-2018-US-991548

PATIENT
  Age: 63 Year
  Sex: Female

DRUGS (4)
  1. TAXOTERE [Suspect]
     Active Substance: DOCETAXEL
     Route: 065
     Dates: start: 20150109, end: 20150403
  2. DOCETAXEL [Suspect]
     Active Substance: DOCETAXEL
     Route: 065
     Dates: start: 20150109, end: 20150403
  3. DOCETAXEL [Suspect]
     Active Substance: DOCETAXEL
     Route: 065
     Dates: start: 20150109, end: 20150403
  4. DOCETAXEL [Suspect]
     Active Substance: DOCETAXEL
     Route: 065
     Dates: start: 20150109, end: 20150403

REACTIONS (4)
  - Alopecia [Not Recovered/Not Resolved]
  - Madarosis [Not Recovered/Not Resolved]
  - Alopecia [Not Recovered/Not Resolved]
  - Alopecia [Unknown]

NARRATIVE: CASE EVENT DATE: 20151003
